FAERS Safety Report 17225180 (Version 3)
Quarter: 2021Q2

REPORT INFORMATION
  Report Type: Spontaneous
  Country: US (occurrence: US)
  Receive Date: 20200102
  Receipt Date: 20210524
  Transmission Date: 20210716
  Serious: Yes (Disabling, Other)
  Sender: FDA-Public Use
  Company Number: US-AMERICAN REGENT INC-2019002878

PATIENT
  Age: 43 Year
  Sex: Female
  Weight: 74.2 kg

DRUGS (2)
  1. INJECTAFER [Suspect]
     Active Substance: FERRIC CARBOXYMALTOSE
     Dosage: 200 MILLIGRAM
     Route: 042
     Dates: start: 20191113, end: 20191113
  2. INJECTAFER [Suspect]
     Active Substance: FERRIC CARBOXYMALTOSE
     Indication: IRON DEFICIENCY ANAEMIA
     Dosage: 200 MILLIGRAM
     Route: 042
     Dates: start: 20191106, end: 20191106

REACTIONS (31)
  - Feeling abnormal [Not Recovered/Not Resolved]
  - Vestibular disorder [Not Recovered/Not Resolved]
  - Product use issue [Unknown]
  - Vertigo [Recovering/Resolving]
  - Muscle tightness [Not Recovered/Not Resolved]
  - Confusional state [Recovering/Resolving]
  - Muscle spasms [Not Recovered/Not Resolved]
  - Vestibular migraine [Not Recovered/Not Resolved]
  - Arthralgia [Not Recovered/Not Resolved]
  - Dyspnoea [Not Recovered/Not Resolved]
  - Anxiety [Not Recovered/Not Resolved]
  - Disturbance in attention [Not Recovered/Not Resolved]
  - Pain [Not Recovered/Not Resolved]
  - Motor dysfunction [Not Recovered/Not Resolved]
  - Tinnitus [Not Recovered/Not Resolved]
  - Partner stress [Not Recovered/Not Resolved]
  - Memory impairment [Recovering/Resolving]
  - Vision blurred [Recovering/Resolving]
  - Vitamin D deficiency [Unknown]
  - Myalgia [Not Recovered/Not Resolved]
  - Dizziness [Recovering/Resolving]
  - Anhedonia [Not Recovered/Not Resolved]
  - Nervous system disorder [Not Recovered/Not Resolved]
  - Hypophosphataemia [Recovered/Resolved]
  - Cognitive disorder [Not Recovered/Not Resolved]
  - Visual impairment [Not Recovered/Not Resolved]
  - Product quality issue [Unknown]
  - Dyspnoea exertional [Not Recovered/Not Resolved]
  - Speech disorder [Not Recovered/Not Resolved]
  - Disorientation [Not Recovered/Not Resolved]
  - Emotional distress [Not Recovered/Not Resolved]

NARRATIVE: CASE EVENT DATE: 2019
